FAERS Safety Report 23018058 (Version 2)
Quarter: 2023Q4

REPORT INFORMATION
  Report Type: Other
  Country: US (occurrence: None)
  Receive Date: 20231003
  Receipt Date: 20231009
  Transmission Date: 20240109
  Serious: Yes (Other)
  Sender: FDA-Public Use
  Company Number: US-ROCHE-3429112

PATIENT

DRUGS (3)
  1. TRASTUZUMAB [Suspect]
     Active Substance: TRASTUZUMAB
     Indication: Breast cancer metastatic
     Route: 065
  2. CARBOPLATIN [Suspect]
     Active Substance: CARBOPLATIN
     Indication: Breast cancer metastatic
     Route: 065
  3. DOCETAXEL [Suspect]
     Active Substance: DOCETAXEL
     Indication: Breast cancer metastatic
     Route: 065

REACTIONS (75)
  - Thrombocytopenia [Unknown]
  - Neutropenia [Unknown]
  - Infection [Unknown]
  - Pyrexia [Unknown]
  - Diarrhoea [Unknown]
  - Leukopenia [Unknown]
  - Anaemia [Unknown]
  - Fatigue [Unknown]
  - Agitation [Unknown]
  - Confusional state [Unknown]
  - Disorientation [Unknown]
  - Hallucination [Unknown]
  - Coma [Unknown]
  - Seizure [Unknown]
  - Nausea [Unknown]
  - Abdominal discomfort [Unknown]
  - Retching [Unknown]
  - Rash [Unknown]
  - Dry skin [Unknown]
  - Vomiting [Unknown]
  - Anaphylactic reaction [Unknown]
  - Influenza like illness [Unknown]
  - Alopecia [Unknown]
  - Oedema peripheral [Unknown]
  - Decreased appetite [Unknown]
  - Taste disorder [Unknown]
  - Dysgeusia [Unknown]
  - Myalgia [Unknown]
  - Arthralgia [Unknown]
  - Paraesthesia [Unknown]
  - Stomatitis [Unknown]
  - Ulcer [Unknown]
  - Blood alkaline phosphatase increased [Unknown]
  - Aspartate aminotransferase increased [Unknown]
  - Vertigo [Unknown]
  - Dizziness [Unknown]
  - Blood lactate dehydrogenase increased [Unknown]
  - Hyperglycaemia [Unknown]
  - Blood urea increased [Unknown]
  - Hypochloraemia [Unknown]
  - Dyspepsia [Unknown]
  - Pain [Unknown]
  - Dyspnoea [Unknown]
  - Chills [Unknown]
  - Asthenia [Unknown]
  - Discomfort [Unknown]
  - Constipation [Unknown]
  - Cough [Unknown]
  - Anxiety [Unknown]
  - Hypocalcaemia [Unknown]
  - Weight decreased [Unknown]
  - Flushing [Unknown]
  - Headache [Unknown]
  - Hyperkalaemia [Unknown]
  - Hypercapnia [Unknown]
  - Alanine aminotransferase increased [Unknown]
  - Hypoproteinaemia [Unknown]
  - Hypoalbuminaemia [Unknown]
  - Angina pectoris [Unknown]
  - Hypercalcaemia [Unknown]
  - Blood creatinine increased [Unknown]
  - Weight increased [Unknown]
  - Arrhythmia [Unknown]
  - Hyponatraemia [Unknown]
  - Hypomagnesaemia [Unknown]
  - Thrombosis [Unknown]
  - Hypersensitivity [Unknown]
  - Hypocapnia [Unknown]
  - Rectal haemorrhage [Unknown]
  - Muscle spasms [Unknown]
  - Dehydration [Unknown]
  - Coordination abnormal [Unknown]
  - Intention tremor [Unknown]
  - Nystagmus [Unknown]
  - Thrombocytosis [Unknown]
